FAERS Safety Report 14928008 (Version 2)
Quarter: 2018Q4

REPORT INFORMATION
  Report Type: Spontaneous
  Country: US (occurrence: US)
  Receive Date: 20180523
  Receipt Date: 20181113
  Transmission Date: 20190204
  Serious: Yes (Other)
  Sender: FDA-Public Use
  Company Number: US-ASTRAZENECA-2018SE65839

PATIENT
  Age: 21748 Day
  Sex: Female
  Weight: 68.5 kg

DRUGS (94)
  1. PRILOSEC [Suspect]
     Active Substance: OMEPRAZOLE MAGNESIUM
     Indication: GASTROOESOPHAGEAL REFLUX DISEASE
     Route: 048
     Dates: start: 20000724, end: 20080731
  2. GLIPIZIDE. [Concomitant]
     Active Substance: GLIPIZIDE
     Indication: TYPE 2 DIABETES MELLITUS
     Route: 048
     Dates: start: 2010, end: 2016
  3. ZOLOFT [Concomitant]
     Active Substance: SERTRALINE HYDROCHLORIDE
     Indication: DEPRESSION
     Route: 048
     Dates: start: 1995, end: 2011
  4. ZOLOFT [Concomitant]
     Active Substance: SERTRALINE HYDROCHLORIDE
     Indication: DEPRESSION
     Route: 048
     Dates: start: 20101109
  5. VICODIN [Concomitant]
     Active Substance: ACETAMINOPHEN\HYDROCODONE BITARTRATE
     Indication: ANALGESIC THERAPY
     Dosage: 5-500 MG
     Route: 065
     Dates: start: 20120328
  6. METOPROLOL TARTRATE. [Concomitant]
     Active Substance: METOPROLOL TARTRATE
     Indication: HYPERTENSION
     Route: 048
     Dates: start: 20040412
  7. NORTRIPTYLINE [Concomitant]
     Active Substance: NORTRIPTYLINE
     Indication: DEPRESSION
     Route: 065
     Dates: start: 1998
  8. ZITHROMAX [Concomitant]
     Active Substance: AZITHROMYCIN DIHYDRATE
     Indication: BACTERIAL INFECTION
     Dates: start: 2000
  9. ALLOPURINOL. [Concomitant]
     Active Substance: ALLOPURINOL
     Indication: RENAL DISORDER
     Route: 065
     Dates: start: 2011, end: 2013
  10. LOSARTAN POTASSIUM. [Concomitant]
     Active Substance: LOSARTAN POTASSIUM
     Indication: HYPERTENSION
     Dates: start: 2012, end: 2017
  11. OXYBUTYNIN. [Concomitant]
     Active Substance: OXYBUTYNIN CHLORIDE
     Indication: HYPERTONIC BLADDER
     Route: 065
     Dates: start: 20120329
  12. ALBUTEROL. [Concomitant]
     Active Substance: ALBUTEROL
     Indication: OBSTRUCTIVE AIRWAYS DISORDER
     Dates: start: 2016, end: 2018
  13. CARVEDILOL. [Concomitant]
     Active Substance: CARVEDILOL
     Indication: BLOOD PRESSURE MEASUREMENT
     Dates: start: 2016, end: 2018
  14. AMLODIPINE [Concomitant]
     Active Substance: AMLODIPINE BESYLATE
     Route: 048
  15. AMLODIPINE [Concomitant]
     Active Substance: AMLODIPINE BESYLATE
     Route: 048
     Dates: start: 20120329
  16. ISOSORBIDE MONONITRATE. [Concomitant]
     Active Substance: ISOSORBIDE MONONITRATE
     Route: 048
     Dates: start: 20101013
  17. FLUTICASONE. [Concomitant]
     Active Substance: FLUTICASONE
     Dosage: 50 MCG
     Route: 065
     Dates: start: 20090415
  18. ASPIRIN. [Concomitant]
     Active Substance: ASPIRIN
     Route: 048
  19. FISH OIL [Concomitant]
     Active Substance: FISH OIL
     Route: 048
  20. SAM-E [Concomitant]
     Active Substance: ADEMETIONINE
     Route: 065
  21. PROTONIX [Suspect]
     Active Substance: PANTOPRAZOLE SODIUM
     Indication: GASTROOESOPHAGEAL REFLUX DISEASE
     Route: 065
     Dates: start: 20000724, end: 20080731
  22. PREVACID [Suspect]
     Active Substance: LANSOPRAZOLE
     Indication: GASTROOESOPHAGEAL REFLUX DISEASE
     Route: 065
     Dates: start: 20010921
  23. REGLAN [Concomitant]
     Active Substance: METOCLOPRAMIDE HYDROCHLORIDE
     Indication: NAUSEA
     Route: 048
     Dates: start: 2010
  24. LISINOPRIL. [Concomitant]
     Active Substance: LISINOPRIL
     Indication: HYPERTENSION
     Route: 065
     Dates: start: 20090216
  25. DOXEPIN [Concomitant]
     Active Substance: DOXEPIN
     Indication: DEPRESSION
     Dates: start: 1998
  26. ZITHROMAX [Concomitant]
     Active Substance: AZITHROMYCIN DIHYDRATE
     Indication: BACTERIAL INFECTION
     Dates: start: 2004
  27. SONATA [Concomitant]
     Active Substance: ZALEPLON
     Indication: INSOMNIA
     Route: 065
     Dates: start: 2000, end: 2001
  28. GEMFIBROZIL. [Concomitant]
     Active Substance: GEMFIBROZIL
     Route: 065
     Dates: start: 20040903
  29. NITROSTAT [Concomitant]
     Active Substance: NITROGLYCERIN
     Dates: start: 20110805
  30. MACROBID [Concomitant]
     Active Substance: NITROFURANTOIN\NITROFURANTOIN MONOHYDRATE
     Route: 065
     Dates: start: 20001128
  31. NIFEDICAL XL [Concomitant]
     Active Substance: NIFEDIPINE
     Route: 048
  32. METFORMIN [Concomitant]
     Active Substance: METFORMIN HYDROCHLORIDE
     Indication: TYPE 2 DIABETES MELLITUS
     Route: 065
     Dates: start: 2004, end: 2012
  33. TRAZODONE [Concomitant]
     Active Substance: TRAZODONE HYDROCHLORIDE
     Indication: DEPRESSION
     Dates: start: 1998
  34. PAXIL [Concomitant]
     Active Substance: PAROXETINE HYDROCHLORIDE
     Indication: DEPRESSION
     Route: 065
     Dates: start: 20011007
  35. HCTZ [Concomitant]
     Active Substance: HYDROCHLOROTHIAZIDE
     Indication: HYPERTENSION
     Route: 065
     Dates: start: 1998, end: 2017
  36. ESTRADERM [Concomitant]
     Active Substance: ESTRADIOL
     Indication: OESTROGEN THERAPY
     Dates: start: 1998
  37. CLINDAMYCIN. [Concomitant]
     Active Substance: CLINDAMYCIN
     Indication: BACTERIAL INFECTION
     Dates: start: 2010
  38. LOVASTATIN. [Concomitant]
     Active Substance: LOVASTATIN
     Indication: BLOOD CHOLESTEROL INCREASED
     Route: 048
     Dates: start: 2004, end: 2013
  39. CIPROFLOXACIN. [Concomitant]
     Active Substance: CIPROFLOXACIN
     Indication: BACTERIAL INFECTION
     Route: 065
     Dates: start: 19980625
  40. BENADRYL [Concomitant]
     Active Substance: DIPHENHYDRAMINE HYDROCHLORIDE
     Route: 065
  41. PRILOSEC [Suspect]
     Active Substance: OMEPRAZOLE MAGNESIUM
     Indication: GASTROOESOPHAGEAL REFLUX DISEASE
     Dosage: GENERIC
     Route: 065
     Dates: start: 2007, end: 2017
  42. MEVACOR [Concomitant]
     Active Substance: LOVASTATIN
     Indication: BLOOD CHOLESTEROL INCREASED
     Route: 065
     Dates: start: 20040702
  43. ALPRAZOLAM. [Concomitant]
     Active Substance: ALPRAZOLAM
     Indication: ANXIETY
     Dates: start: 1997, end: 1998
  44. HCTZ [Concomitant]
     Active Substance: HYDROCHLOROTHIAZIDE
     Indication: HYPERTENSION
     Route: 065
     Dates: start: 19980710
  45. FAMOTIDINE. [Concomitant]
     Active Substance: FAMOTIDINE
  46. CEPHALEXIN. [Concomitant]
     Active Substance: CEPHALEXIN
     Route: 065
     Dates: start: 20110728
  47. DIOVAN [Concomitant]
     Active Substance: VALSARTAN
     Route: 065
     Dates: start: 20060103
  48. NEXIUM [Suspect]
     Active Substance: ESOMEPRAZOLE MAGNESIUM
     Indication: GASTROOESOPHAGEAL REFLUX DISEASE
     Dosage: GENERIC
     Route: 048
     Dates: start: 2017
  49. PRILOSEC [Suspect]
     Active Substance: OMEPRAZOLE MAGNESIUM
     Indication: GASTROOESOPHAGEAL REFLUX DISEASE
     Dosage: GENERIC
     Route: 065
     Dates: start: 20120416
  50. PROTONIX [Suspect]
     Active Substance: PANTOPRAZOLE SODIUM
     Indication: GASTROOESOPHAGEAL REFLUX DISEASE
     Route: 065
     Dates: start: 2007, end: 2008
  51. KLONOPIN [Concomitant]
     Active Substance: CLONAZEPAM
     Indication: ANXIETY
     Route: 048
     Dates: start: 2010, end: 2011
  52. MEVACOR [Concomitant]
     Active Substance: LOVASTATIN
     Indication: BLOOD CHOLESTEROL INCREASED
     Route: 065
     Dates: start: 2010
  53. METOPROLOL TARTRATE. [Concomitant]
     Active Substance: METOPROLOL TARTRATE
     Indication: HYPERTENSION
     Route: 048
     Dates: start: 2004
  54. NORTRIPTYLINE [Concomitant]
     Active Substance: NORTRIPTYLINE
     Indication: DEPRESSION
     Route: 065
     Dates: start: 20080627
  55. SONATA [Concomitant]
     Active Substance: ZALEPLON
     Indication: INSOMNIA
     Route: 065
     Dates: start: 20010921
  56. ATORVASTATIN [Concomitant]
     Active Substance: ATORVASTATIN
     Indication: BLOOD CHOLESTEROL
     Dates: start: 2016, end: 2018
  57. CALCITRIOL. [Concomitant]
     Active Substance: CALCITRIOL
     Dosage: 0.25 MCG
     Route: 065
     Dates: start: 20120225
  58. LEVAQUIN [Concomitant]
     Active Substance: LEVOFLOXACIN
     Route: 048
  59. PRILOSEC [Suspect]
     Active Substance: OMEPRAZOLE MAGNESIUM
     Indication: GASTROOESOPHAGEAL REFLUX DISEASE
     Route: 048
     Dates: start: 2000, end: 2005
  60. PRILOSEC [Suspect]
     Active Substance: OMEPRAZOLE MAGNESIUM
     Indication: GASTROOESOPHAGEAL REFLUX DISEASE
     Route: 048
     Dates: start: 20010323, end: 20080731
  61. PREVACID [Suspect]
     Active Substance: LANSOPRAZOLE
     Indication: GASTROOESOPHAGEAL REFLUX DISEASE
     Route: 065
     Dates: start: 1997, end: 2001
  62. KLONOPIN [Concomitant]
     Active Substance: CLONAZEPAM
     Indication: ANXIETY
     Route: 048
     Dates: start: 20101123
  63. ACTOS [Concomitant]
     Active Substance: PIOGLITAZONE HYDROCHLORIDE
     Indication: DIABETES MELLITUS
     Route: 048
     Dates: start: 2008, end: 2010
  64. PREMARIN [Concomitant]
     Active Substance: ESTROGENS, CONJUGATED
     Indication: HORMONE THERAPY
     Route: 065
     Dates: start: 1998, end: 2004
  65. OXYBUTYNIN. [Concomitant]
     Active Substance: OXYBUTYNIN CHLORIDE
     Indication: HYPERTONIC BLADDER
     Route: 065
     Dates: start: 2013
  66. TYLENOL [Concomitant]
     Active Substance: ACETAMINOPHEN
     Indication: HEADACHE
     Dates: start: 1995
  67. IMIPRAMINE [Concomitant]
     Active Substance: IMIPRAMINE
     Route: 065
     Dates: start: 20040806
  68. ISOSORBIDE MONONITRATE. [Concomitant]
     Active Substance: ISOSORBIDE MONONITRATE
     Dosage: 2 TABLETS
     Route: 048
  69. VITAMIN D [Concomitant]
     Active Substance: CHOLECALCIFEROL
     Dosage: 2000 UNITS
     Route: 065
  70. VALIUM [Concomitant]
     Active Substance: DIAZEPAM
     Route: 065
  71. PROTONIX [Suspect]
     Active Substance: PANTOPRAZOLE SODIUM
     Indication: GASTROOESOPHAGEAL REFLUX DISEASE
     Dosage: GENERIC
     Route: 065
     Dates: start: 2017
  72. GLIPIZIDE. [Concomitant]
     Active Substance: GLIPIZIDE
     Indication: TYPE 2 DIABETES MELLITUS
     Route: 048
     Dates: start: 20120329
  73. METFORMIN [Concomitant]
     Active Substance: METFORMIN HYDROCHLORIDE
     Indication: TYPE 2 DIABETES MELLITUS
     Route: 065
     Dates: start: 20040826
  74. ACTOS [Concomitant]
     Active Substance: PIOGLITAZONE HYDROCHLORIDE
     Indication: DIABETES MELLITUS
     Route: 048
     Dates: start: 20080728
  75. LISINOPRIL. [Concomitant]
     Active Substance: LISINOPRIL
     Indication: HYPERTENSION
     Route: 065
     Dates: start: 2008, end: 2009
  76. ATACAND [Concomitant]
     Active Substance: CANDESARTAN CILEXETIL
     Indication: HYPERTENSION
     Route: 065
     Dates: start: 2006, end: 2008
  77. ATACAND [Concomitant]
     Active Substance: CANDESARTAN CILEXETIL
     Indication: HYPERTENSION
     Route: 065
     Dates: start: 20060304
  78. PAXIL [Concomitant]
     Active Substance: PAROXETINE HYDROCHLORIDE
     Indication: DEPRESSION
     Route: 065
     Dates: start: 1998, end: 2001
  79. CYCLOBENZAPRINE. [Concomitant]
     Active Substance: CYCLOBENZAPRINE
     Indication: MYALGIA
     Route: 065
     Dates: start: 1998, end: 2009
  80. BIAXIN [Concomitant]
     Active Substance: CLARITHROMYCIN
     Indication: BACTERIAL INFECTION
     Dates: start: 1998, end: 1998
  81. CLINDAMYCIN. [Concomitant]
     Active Substance: CLINDAMYCIN
     Indication: BACTERIAL INFECTION
     Dates: start: 2012
  82. CIPROFLOXACIN. [Concomitant]
     Active Substance: CIPROFLOXACIN
     Indication: BACTERIAL INFECTION
     Route: 065
     Dates: start: 20120328
  83. NOVOLOG [Concomitant]
     Active Substance: INSULIN ASPART
     Indication: TYPE 2 DIABETES MELLITUS
     Dates: start: 2016, end: 2018
  84. HYDROXYZINE [Concomitant]
     Active Substance: HYDROXYZINE HYDROCHLORIDE
     Route: 065
     Dates: start: 20120407
  85. NEXIUM [Suspect]
     Active Substance: ESOMEPRAZOLE MAGNESIUM
     Indication: GASTROOESOPHAGEAL REFLUX DISEASE
     Route: 048
     Dates: start: 2009, end: 2010
  86. ZOLOFT [Concomitant]
     Active Substance: SERTRALINE HYDROCHLORIDE
     Indication: DEPRESSION
     Route: 048
     Dates: start: 20040831
  87. VICODIN [Concomitant]
     Active Substance: ACETAMINOPHEN\HYDROCODONE BITARTRATE
     Indication: ANALGESIC THERAPY
     Dosage: 5-500 MG
     Route: 065
     Dates: start: 2004, end: 2010
  88. METOPROLOL TARTRATE. [Concomitant]
     Active Substance: METOPROLOL TARTRATE
     Indication: HYPERTENSION
     Route: 048
  89. CYCLOBENZAPRINE. [Concomitant]
     Active Substance: CYCLOBENZAPRINE
     Indication: MYALGIA
     Route: 065
     Dates: start: 20010330
  90. HYDROCODONE [Concomitant]
     Active Substance: HYDROCODONE
     Indication: ANALGESIC THERAPY
     Dates: start: 2012, end: 2017
  91. ALLOPURINOL. [Concomitant]
     Active Substance: ALLOPURINOL
     Indication: RENAL DISORDER
     Route: 065
     Dates: start: 20120329
  92. CIPROFLOXACIN. [Concomitant]
     Active Substance: CIPROFLOXACIN
     Indication: BACTERIAL INFECTION
     Route: 065
     Dates: start: 2008, end: 2017
  93. AMITRIPTYLINE [Concomitant]
     Active Substance: AMITRIPTYLINE
     Route: 065
     Dates: start: 20040819
  94. PROAIR HFA [Concomitant]
     Active Substance: ALBUTEROL SULFATE
     Dosage: 90 MCG
     Dates: start: 20110728

REACTIONS (4)
  - Renal failure [Not Recovered/Not Resolved]
  - Acute kidney injury [Unknown]
  - End stage renal disease [Unknown]
  - Chronic kidney disease [Not Recovered/Not Resolved]

NARRATIVE: CASE EVENT DATE: 20080918
